FAERS Safety Report 8943305 (Version 2)
Quarter: 2012Q4

REPORT INFORMATION
  Report Type: Report from Study
  Country: SE (occurrence: SE)
  Receive Date: 20121204
  Receipt Date: 20121228
  Transmission Date: 20130627
  Serious: Yes (Hospitalization)
  Sender: FDA-Public Use
  Company Number: SE-AMGEN-SWECT2012076979

PATIENT
  Age: 36 Year
  Sex: Female

DRUGS (2)
  1. ETANERCEPT [Suspect]
     Indication: ANKYLOSING SPONDYLITIS
     Dosage: 50 mg, weekly
     Route: 058
     Dates: start: 20121025, end: 20121116
  2. IPREN [Concomitant]
     Dosage: UNK
     Dates: start: 20100916

REACTIONS (3)
  - Malaise [Recovering/Resolving]
  - Fatigue [Recovering/Resolving]
  - Dizziness [Recovering/Resolving]
